FAERS Safety Report 9373729 (Version 4)
Quarter: 2013Q3

REPORT INFORMATION
  Report Type: Report from Study
  Country: CA (occurrence: CA)
  Receive Date: 20130627
  Receipt Date: 20130716
  Transmission Date: 20140515
  Serious: Yes (Other)
  Sender: FDA-Public Use
  Company Number: CA-ABBOTT-13P-028-1109441-00

PATIENT
  Sex: Female

DRUGS (2)
  1. HUMIRA [Suspect]
     Indication: CROHN^S DISEASE
     Route: 058
     Dates: start: 20091019, end: 201204
  2. HUMIRA [Suspect]
     Route: 058
     Dates: start: 201204, end: 20130523

REACTIONS (4)
  - Foot deformity [Recovering/Resolving]
  - Hyperkeratosis [Recovering/Resolving]
  - Rectal haemorrhage [Recovered/Resolved]
  - Inflammation [Recovered/Resolved]
